FAERS Safety Report 24398001 (Version 1)
Quarter: 2024Q4

REPORT INFORMATION
  Report Type: Spontaneous
  Country: AT (occurrence: AT)
  Receive Date: 20241004
  Receipt Date: 20241004
  Transmission Date: 20250115
  Serious: Yes (Hospitalization, Other)
  Sender: JOHNSON AND JOHNSON
  Company Number: AT-JNJFOC-20240972767

PATIENT
  Age: 72 Year
  Sex: Female

DRUGS (3)
  1. TECVAYLI [Suspect]
     Active Substance: TECLISTAMAB-CQYV
     Indication: Product used for unknown indication
     Dosage: STEP UP DOSE 1
     Route: 065
     Dates: start: 20230605
  2. TECVAYLI [Suspect]
     Active Substance: TECLISTAMAB-CQYV
     Dosage: STEP UP DOSE 1
     Route: 065
     Dates: start: 20230626
  3. TECVAYLI [Suspect]
     Active Substance: TECLISTAMAB-CQYV
     Dosage: MAINTENANCE DOSE
     Route: 065
     Dates: start: 20230630, end: 20230630

REACTIONS (3)
  - Pancytopenia [Unknown]
  - Cytokine release syndrome [Unknown]
  - Immune effector cell-associated neurotoxicity syndrome [Unknown]
